FAERS Safety Report 8795659 (Version 1)
Quarter: 2012Q4

REPORT INFORMATION
  Report Type: Report from Study
  Country: FR (occurrence: FR)
  Receive Date: 20120919
  Receipt Date: 20120919
  Transmission Date: 20130627
  Serious: Yes (Hospitalization)
  Sender: FDA-Public Use
  Company Number: FR-BAYER-2012-094296

PATIENT
  Age: 84 Year
  Sex: Female

DRUGS (6)
  1. SORAFENIB (RAF KINASE INHIBITOR) [Suspect]
     Indication: INTRAOCULAR MELANOMA
     Dosage: 800 mg, QD
     Route: 048
     Dates: start: 20120717, end: 20120828
  2. SPASFON [Concomitant]
  3. DEBRIDAT [Concomitant]
  4. SOLUMEDROL [Concomitant]
  5. PRIMPERAN [Concomitant]
  6. TOPALGIC [SUPROFEN] [Concomitant]

REACTIONS (8)
  - General physical health deterioration [Unknown]
  - Asthenia [Unknown]
  - Decreased appetite [Unknown]
  - Nausea [Unknown]
  - Hepatitis [Unknown]
  - Cholestasis [Unknown]
  - Abdominal pain [Unknown]
  - Hypokalaemia [Unknown]
